FAERS Safety Report 10049767 (Version 2)
Quarter: 2014Q2

REPORT INFORMATION
  Report Type: Spontaneous
  Country: US (occurrence: US)
  Receive Date: 20140401
  Receipt Date: 20140613
  Transmission Date: 20141212
  Serious: Yes (Other)
  Sender: FDA-Public Use
  Company Number: US-ASTELLAS-2014US003099

PATIENT
  Age: 60 Year
  Sex: Male

DRUGS (5)
  1. XTANDI [Suspect]
     Indication: PROSTATE CANCER
     Route: 048
  2. METHADONE [Concomitant]
     Indication: NECK PAIN
     Route: 065
  3. METHADONE [Concomitant]
     Indication: SPINAL PAIN
  4. FENTANYL [Suspect]
     Indication: NECK PAIN
     Dosage: 0.05 MG, UNKNOWN FREQ.
     Route: 062
  5. FENTANYL [Suspect]
     Indication: SPINAL PAIN

REACTIONS (5)
  - Neck pain [Unknown]
  - Spinal pain [Unknown]
  - Labelled drug-drug interaction medication error [Unknown]
  - Feeling jittery [Unknown]
  - Malaise [Unknown]
